FAERS Safety Report 5389498-2 (Version None)
Quarter: 2007Q3

REPORT INFORMATION
  Report Type: 
  Country: None (occurrence: None)
  Receive Date: 20070717
  Receipt Date: 20070705
  Transmission Date: 20080115
  Serious: Yes (Life-Threatening, Hospitalization)
  Sender: FDA-Public Use
  Company Number: CH-PFIZER INC-2007056166

PATIENT
  Sex: Female

DRUGS (6)
  1. ZYRTEC [Suspect]
  2. ACETAMINOPHEN [Suspect]
  3. ACETYLCARNITINE [Suspect]
  4. SEROPRAM [Suspect]
  5. PREDNISON [Suspect]
  6. ECOFENAC [Suspect]

REACTIONS (3)
  - COMA [None]
  - RESPIRATORY FAILURE [None]
  - SUICIDE ATTEMPT [None]
